FAERS Safety Report 14531886 (Version 1)
Quarter: 2018Q1

REPORT INFORMATION
  Report Type: Not Available
  Country: CH (occurrence: US)
  Receive Date: 20180214
  Receipt Date: 20180214
  Transmission Date: 20180509
  Serious: Yes (Hospitalization)
  Sender: FDA-Public Use
  Company Number: CH-ANIPHARMA-2018-US-002144

PATIENT
  Age: 60 Year
  Sex: Female
  Weight: 113.4 kg

DRUGS (3)
  1. CRESTOR [Concomitant]
     Active Substance: ROSUVASTATIN CALCIUM
     Route: 065
     Dates: start: 20130506, end: 20140921
  2. REGLAN [Suspect]
     Active Substance: METOCLOPRAMIDE HYDROCHLORIDE
     Route: 065
  3. CANAKINUMAB VS PLACEBO POWDER FOR SOL FOR INJ [Suspect]
     Active Substance: CANAKINUMAB
     Dosage: 300 MG, QUARTERLY
     Route: 058
     Dates: start: 20140203, end: 20140501

REACTIONS (7)
  - Abdominal pain [Recovered/Resolved]
  - Cholelithiasis [Recovered/Resolved]
  - Nausea [Recovering/Resolving]
  - Vomiting [Recovering/Resolving]
  - Condition aggravated [Recovering/Resolving]
  - Stomach mass [Unknown]
  - Biliary dyskinesia [None]

NARRATIVE: CASE EVENT DATE: 20140922
